FAERS Safety Report 5307465-1 (Version None)
Quarter: 2007Q2

REPORT INFORMATION
  Report Type: 
  Country: None (occurrence: None)
  Receive Date: 20070425
  Receipt Date: 20070423
  Transmission Date: 20071010
  Serious: Yes (Hospitalization)
  Sender: FDA-Public Use
  Company Number: HQWYE735323APR07

PATIENT
  Age: 74 Year
  Sex: Male

DRUGS (4)
  1. CORDARONE [Suspect]
     Indication: VENTRICULAR EXTRASYSTOLES
     Route: 048
     Dates: start: 20050215, end: 20061108
  2. CELLCEPT [Concomitant]
     Route: 048
     Dates: start: 19960615
  3. RAPAMUNE [Concomitant]
     Route: 048
     Dates: start: 20060415
  4. RENITEC [Concomitant]
     Indication: ESSENTIAL HYPERTENSION
     Dosage: 1 UNIT EVERY 1 DAY
     Route: 048
     Dates: start: 20030615

REACTIONS (3)
  - ATRIAL FIBRILLATION [None]
  - HYPERTHYROIDISM [None]
  - INTERSTITIAL LUNG DISEASE [None]
